FAERS Safety Report 7824372-0 (Version None)
Quarter: 2011Q4

REPORT INFORMATION
  Report Type: 
  Country: None (occurrence: None)
  Receive Date: 20111019
  Receipt Date: 20111011
  Transmission Date: 20120403
  Serious: Yes (Hospitalization)
  Sender: FDA-Public Use
  Company Number: MX-BRISTOL-MYERS SQUIBB COMPANY-16170524

PATIENT
  Age: 43 Year
  Sex: Female
  Weight: 33 kg

DRUGS (4)
  1. ERBITUX [Suspect]
     Indication: HEAD AND NECK CANCER
     Dosage: 23SEP-23SEP11=1D(D1OFCYCLE1ONLY),30SEP11-ONG 250MG/M2(ON DAY 1,8+15 EVERYCYCLE),LAST DOSE ON7OCT11
     Route: 042
     Dates: start: 20110923
  2. CARBOPLATIN [Suspect]
     Indication: HEAD AND NECK CANCER
     Dosage: 1 DF = AU5 ON DAY ONE EVERY CYCLE
     Route: 042
     Dates: start: 20110923
  3. FLUOROURACIL [Suspect]
     Indication: HEAD AND NECK CANCER
     Dosage: ON DAY 1 -4
     Route: 042
     Dates: start: 20110923
  4. CISPLATIN [Suspect]
     Indication: HEAD AND NECK CANCER
     Dosage: DAY 1 EVERY CYCLE
     Route: 042
     Dates: start: 20110923

REACTIONS (3)
  - PNEUMONIA [None]
  - SEPTIC SHOCK [None]
  - NEUTROPENIA [None]
